FAERS Safety Report 9482523 (Version 2)
Quarter: 2013Q3

REPORT INFORMATION
  Report Type: Spontaneous
  Country: IT (occurrence: IT)
  Receive Date: 20130828
  Receipt Date: 20130909
  Transmission Date: 20140515
  Serious: Yes (Hospitalization)
  Sender: FDA-Public Use
  Company Number: IT-SANOFI-AVENTIS-2013SA084802

PATIENT
  Age: 44 Year
  Sex: Female

DRUGS (1)
  1. FERLIXIT [Suspect]
     Indication: ANAEMIA
     Route: 042
     Dates: start: 20130412, end: 20130412

REACTIONS (3)
  - Choking sensation [Recovered/Resolved]
  - Dyspepsia [Recovered/Resolved]
  - Abdominal pain upper [Recovered/Resolved]
